FAERS Safety Report 16039917 (Version 1)
Quarter: 2019Q1

REPORT INFORMATION
  Report Type: Spontaneous
  Country: US (occurrence: US)
  Receive Date: 20190306
  Receipt Date: 20190306
  Transmission Date: 20190418
  Serious: No
  Sender: FDA-Public Use
  Company Number: US-TEVA-2019-US-1010680

PATIENT
  Age: 59 Year
  Sex: Male

DRUGS (1)
  1. GABAPEBTIN TEVA [Suspect]
     Active Substance: GABAPENTIN
     Dosage: 3200 MILLIGRAM DAILY;
     Route: 065
     Dates: start: 2017

REACTIONS (7)
  - Scrotal irritation [Not Recovered/Not Resolved]
  - Pruritus [Not Recovered/Not Resolved]
  - Skin exfoliation [Unknown]
  - Pain [Not Recovered/Not Resolved]
  - Dandruff [Not Recovered/Not Resolved]
  - Skin disorder [Not Recovered/Not Resolved]
  - Product substitution issue [Unknown]
